FAERS Safety Report 16164820 (Version 1)
Quarter: 2019Q2

REPORT INFORMATION
  Report Type: Spontaneous
  Country: MY (occurrence: MY)
  Receive Date: 20190405
  Receipt Date: 20190405
  Transmission Date: 20190711
  Serious: Yes (Other)
  Sender: FDA-Public Use
  Company Number: MY-SA-2019SA092770

PATIENT
  Age: 29 Year
  Sex: Female

DRUGS (1)
  1. TERIFLUNOMIDE. [Suspect]
     Active Substance: TERIFLUNOMIDE
     Indication: RELAPSING-REMITTING MULTIPLE SCLEROSIS
     Dosage: 14 MG, QD

REACTIONS (4)
  - Sepsis [Recovered/Resolved]
  - Pyrexia [Recovered/Resolved]
  - Bicytopenia [Recovered/Resolved]
  - Alanine aminotransferase increased [Recovered/Resolved]
